FAERS Safety Report 21668652 (Version 1)
Quarter: 2022Q4

REPORT INFORMATION
  Report Type: Spontaneous
  Country: US (occurrence: US)
  Receive Date: 20221201
  Receipt Date: 20221201
  Transmission Date: 20230113
  Serious: No
  Sender: FDA-Public Use
  Company Number: US-SA-SAC20221130000952

PATIENT
  Sex: Female

DRUGS (1)
  1. DUPIXENT [Suspect]
     Active Substance: DUPILUMAB
     Indication: Dermatitis atopic
     Dosage: 300 MG, QM
     Route: 058
     Dates: start: 20220823

REACTIONS (7)
  - Abdominal discomfort [Unknown]
  - Headache [Unknown]
  - Paraesthesia [Unknown]
  - Myalgia [Unknown]
  - Nasopharyngitis [Unknown]
  - Eye irritation [Unknown]
  - Off label use [Unknown]

NARRATIVE: CASE EVENT DATE: 20221001
